FAERS Safety Report 4987785-0 (Version None)
Quarter: 2006Q2

REPORT INFORMATION
  Report Type: 
  Country: None (occurrence: None)
  Receive Date: 20060426
  Receipt Date: 20060405
  Transmission Date: 20061013
  Serious: Yes (Death)
  Sender: FDA-Public Use
  Company Number: AU200604001829

PATIENT
  Age: 61 Year
  Sex: Female

DRUGS (6)
  1. XIGRIS [Suspect]
     Indication: SEPSIS
     Dosage: 24 UG/KG/HR , OTHER
     Dates: start: 20060308
  2. PANTOPRAZOLE [Concomitant]
  3. CIPROFLOXACIN [Concomitant]
  4. TIMENTIN [Concomitant]
  5. MORPHINE SULFATE [Concomitant]
  6. MIDAZOLAM HCL [Concomitant]

REACTIONS (1)
  - PNEUMONIA LEGIONELLA [None]
